FAERS Safety Report 21242537 (Version 1)
Quarter: 2022Q3

REPORT INFORMATION
  Report Type: Report from Study
  Country: US (occurrence: US)
  Receive Date: 20220823
  Receipt Date: 20220823
  Transmission Date: 20221027
  Serious: Yes (Hospitalization)
  Sender: FDA-Public Use
  Company Number: US-GILEAD-2022-0594284

PATIENT
  Age: 13 Year
  Sex: Male

DRUGS (18)
  1. AZTREONAM LYSINE [Suspect]
     Active Substance: AZTREONAM LYSINE
     Indication: Cystic fibrosis
     Dosage: 1 VIAL, TID, 28 DAYS ON, 28 DAYS OFF
     Route: 055
  2. PULMOZYME [Suspect]
     Active Substance: DORNASE ALFA
     Indication: Cystic fibrosis
     Dosage: 2.5 ML, QD
     Route: 055
  3. VENTOLIN [Concomitant]
     Active Substance: ALBUTEROL SULFATE
  4. FLOVENT [Concomitant]
     Active Substance: FLUTICASONE PROPIONATE
  5. RANITIDINE [Concomitant]
     Active Substance: RANITIDINE
  6. VITAMIN D NOS [Concomitant]
     Active Substance: VITAMIN D NOS
  7. SODIUM CHLORIDE [Concomitant]
     Active Substance: SODIUM CHLORIDE
  8. CREON [Concomitant]
     Active Substance: PANCRELIPASE AMYLASE\PANCRELIPASE LIPASE\PANCRELIPASE PROTEASE
  9. PEDIASURE [NUTRIENTS NOS] [Concomitant]
  10. SERTRALINE [Concomitant]
     Active Substance: SERTRALINE HYDROCHLORIDE
  11. CYPROHEPTADINE [Concomitant]
     Active Substance: CYPROHEPTADINE
  12. MIRALAX [Concomitant]
     Active Substance: POLYETHYLENE GLYCOL 3350
  13. ALBUTEROL [Concomitant]
     Active Substance: ALBUTEROL
  14. FLUTICASONE [Concomitant]
     Active Substance: FLUTICASONE
  15. LORATADINE [Concomitant]
     Active Substance: LORATADINE
  16. MONTELUKAST [Concomitant]
     Active Substance: MONTELUKAST SODIUM
  17. COLISTIMETHATE SODIUM [Concomitant]
     Active Substance: COLISTIMETHATE SODIUM
  18. VITAMINS NOS [Concomitant]
     Active Substance: VITAMINS

REACTIONS (2)
  - Cystic fibrosis respiratory infection suppression [Unknown]
  - Fatigue [Unknown]
